FAERS Safety Report 6575562-9 (Version None)
Quarter: 2010Q1

REPORT INFORMATION
  Report Type: 
  Country: None (occurrence: None)
  Receive Date: 20100202
  Receipt Date: 20100118
  Transmission Date: 20100710
  Serious: Yes (Hospitalization, Disabling, Other)
  Sender: FDA-Public Use
  Company Number: AUR-APL-2010-00174

PATIENT
  Age: 48 Year
  Sex: Male
  Weight: 86.1834 kg

DRUGS (11)
  1. LISINOPRIL [Suspect]
  2. ALPRAZOLAM (XANAX) [Suspect]
     Indication: ANXIETY
     Dosage: 1MG, QD-TID, ORAL
     Route: 048
  3. NORVASC [Suspect]
     Indication: HYPERTENSION
     Dosage: 5MG DAILY ORAL
     Route: 048
  4. METOPROLOL 25MG [Concomitant]
  5. CARISOPRODOL (SOMA) 350MG [Concomitant]
  6. BUPROPION (WELLBUTRIN) 75MG [Concomitant]
  7. HYDROCODONE/ACETAMINOPHEN (LORTAB) [Concomitant]
  8. ASPIRIN [Concomitant]
  9. PLAVIX [Concomitant]
  10. SIMVASTATIN [Concomitant]
  11. RISPERIDONE [Concomitant]

REACTIONS (4)
  - BLOOD CHOLESTEROL INCREASED [None]
  - CORONARY ARTERIAL STENT INSERTION [None]
  - MYOCARDIAL INFARCTION [None]
  - TYPE 2 DIABETES MELLITUS [None]
